FAERS Safety Report 12070239 (Version 1)
Quarter: 2016Q1

REPORT INFORMATION
  Report Type: Spontaneous
  Country: US (occurrence: US)
  Receive Date: 20160211
  Receipt Date: 20160211
  Transmission Date: 20160526
  Serious: No
  Sender: FDA-Public Use
  Company Number: US-GLAXOSMITHKLINE-US2016016016

PATIENT
  Sex: Female

DRUGS (1)
  1. LAMICTAL [Suspect]
     Active Substance: LAMOTRIGINE
     Indication: PRODUCT USED FOR UNKNOWN INDICATION
     Dosage: 1 DF, 1D
     Dates: start: 2000

REACTIONS (4)
  - Crying [Recovered/Resolved]
  - Nausea [Recovered/Resolved]
  - Emotional disorder [Recovered/Resolved]
  - Feeling abnormal [Recovered/Resolved]
